FAERS Safety Report 5113639-5 (Version None)
Quarter: 2006Q3

REPORT INFORMATION
  Report Type: 
  Country: None (occurrence: None)
  Receive Date: 20060925
  Receipt Date: 20060913
  Transmission Date: 20061208
  Serious: Yes (Other)
  Sender: FDA-Public Use
  Company Number: PHBS2006SE13988

PATIENT
  Sex: Male

DRUGS (1)
  1. LEPONEX [Suspect]
     Indication: SCHIZOPHRENIA

REACTIONS (4)
  - BODY TEMPERATURE INCREASED [None]
  - CATATONIA [None]
  - COMMUNICATION DISORDER [None]
  - DRUG WITHDRAWAL SYNDROME [None]
